FAERS Safety Report 6806953-6 (Version None)
Quarter: 2010Q2

REPORT INFORMATION
  Report Type: 
  Country: None (occurrence: None)
  Receive Date: 20100629
  Receipt Date: 20080703
  Transmission Date: 20101027
  Serious: No
  Sender: FDA-Public Use
  Company Number: US-PFIZER INC-2008049602

PATIENT
  Sex: Female
  Weight: 77.3 kg

DRUGS (5)
  1. ARTHROTEC [Suspect]
     Indication: ARTHRITIS
     Dates: start: 20080507, end: 20080508
  2. VITAMINS [Concomitant]
  3. ACETYLSALICYLIC ACID [Concomitant]
  4. CALCIUM CARBONATE [Concomitant]
  5. CHONDROITIN/GLUCOSAMINE [Concomitant]

REACTIONS (1)
  - ABDOMINAL PAIN UPPER [None]
